FAERS Safety Report 11521346 (Version 1)
Quarter: 2015Q3

REPORT INFORMATION
  Report Type: Spontaneous
  Country: US (occurrence: US)
  Receive Date: 20150918
  Receipt Date: 20150918
  Transmission Date: 20151125
  Serious: No
  Sender: FDA-Public Use
  Company Number: US-ROCHE-748173

PATIENT
  Age: 46 Year
  Sex: Male
  Weight: 81.6 kg

DRUGS (2)
  1. PEGASYS [Suspect]
     Active Substance: PEGINTERFERON ALFA-2A
     Indication: HEPATITIS C
     Dosage: FORM:PRE-FILLED SYRINGE, 27 WEEK OF TREATMENT
     Route: 058
  2. RIBAVIRIN. [Suspect]
     Active Substance: RIBAVIRIN
     Indication: HEPATITIS C
     Dosage: 600 MG IN THE MORNING AND 400 MG IN NIGHT, 27 WEEK OF TREATMENT
     Route: 048

REACTIONS (8)
  - Rash [Not Recovered/Not Resolved]
  - Injection site erythema [Unknown]
  - Pruritus [Recovering/Resolving]
  - Dry mouth [Not Recovered/Not Resolved]
  - Headache [Unknown]
  - Mood altered [Unknown]
  - Muscular weakness [Recovered/Resolved]
  - Injection site pain [Unknown]

NARRATIVE: CASE EVENT DATE: 20100607
